FAERS Safety Report 25631235 (Version 5)
Quarter: 2025Q3

REPORT INFORMATION
  Report Type: Spontaneous
  Country: EU (occurrence: EU)
  Receive Date: 20250801
  Receipt Date: 20250902
  Transmission Date: 20251021
  Serious: Yes (Other)
  Sender: ORGANON
  Company Number: EU-TEVA-VS-3338423

PATIENT
  Age: 74 Year
  Sex: Male

DRUGS (8)
  1. LOSARTAN POTASSIUM AND HYDROCHLOROTHIAZIDE [Suspect]
     Active Substance: HYDROCHLOROTHIAZIDE\LOSARTAN POTASSIUM
     Indication: Hypertension
     Dosage: ONCE DAILY IN THE MORNING FOR OVER 10 YEARS
  2. NIFEDIPINE [Suspect]
     Active Substance: NIFEDIPINE
     Indication: Hypertension
     Dosage: 20 MG TWICE DAILY-ONCE IN THE MORNING AND ONCE IN THE EVENING FOR OVER 10 YEARS
  3. MOXONIDINE [Suspect]
     Active Substance: MOXONIDINE
     Indication: Hypertension
     Dosage: 0.2 MG TWICE DAILY-ONCE IN THE MORNING AND ONCE IN THE EVENING FOR OVER 5 YEARS
  4. METOPROLOL TARTRATE [Suspect]
     Active Substance: METOPROLOL TARTRATE
     Indication: Hypertension
     Dosage: 50 MG HALF A TABLET ONCE DAILY FOR THE PAST 3 YEARS
     Dates: start: 2022
  5. GLIMEPIRIDE [Suspect]
     Active Substance: GLIMEPIRIDE
     Indication: Diabetes mellitus
     Dosage: ONCE DAILY FOR 15 YEARS
     Dates: start: 2010
  6. METFORMIN HYDROCHLORIDE [Suspect]
     Active Substance: METFORMIN HYDROCHLORIDE
     Indication: Diabetes mellitus
     Dosage: THREE TIMES A DAY FOR 15 YEARS
     Dates: start: 2010
  7. PENTOXIFYLLINE [Concomitant]
     Active Substance: PENTOXIFYLLINE
     Indication: Product used for unknown indication
     Dosage: ADMINISTERED FOR 20 YEARS
     Dates: start: 2005
  8. THIOCTIC ACID [Concomitant]
     Active Substance: THIOCTIC ACID
     Indication: Product used for unknown indication
     Dosage: ADMINISTERED FOR 20 YEARS
     Dates: start: 2005

REACTIONS (3)
  - Skin squamous cell carcinoma recurrent [Unknown]
  - Basal cell carcinoma [Unknown]
  - Suspected product contamination [Unknown]
